FAERS Safety Report 25703608 (Version 4)
Quarter: 2025Q3

REPORT INFORMATION
  Report Type: Report from Study
  Country: CA (occurrence: CA)
  Receive Date: 20250820
  Receipt Date: 20250922
  Transmission Date: 20251020
  Serious: Yes (Hospitalization, Other)
  Sender: JOHNSON AND JOHNSON
  Company Number: CA-JNJFOC-20250821780

PATIENT
  Age: 57 Year
  Sex: Male

DRUGS (2)
  1. SIMPONI [Suspect]
     Active Substance: GOLIMUMAB
     Indication: Ankylosing spondylitis
     Route: 058
  2. SIMPONI [Suspect]
     Active Substance: GOLIMUMAB
     Route: 058

REACTIONS (3)
  - Hip arthroplasty [Unknown]
  - Infection [Unknown]
  - Post procedural infection [Not Recovered/Not Resolved]

NARRATIVE: CASE EVENT DATE: 20250101
